FAERS Safety Report 10146236 (Version 1)
Quarter: 2014Q2

REPORT INFORMATION
  Report Type: Spontaneous
  Country: US (occurrence: US)
  Receive Date: 20140501
  Receipt Date: 20140501
  Transmission Date: 20141212
  Serious: Yes (Hospitalization, Other)
  Sender: FDA-Public Use
  Company Number: US-ELI_LILLY_AND_COMPANY-US201404007564

PATIENT
  Sex: Female

DRUGS (4)
  1. HUMALOG LISPRO [Suspect]
     Indication: INSULIN-REQUIRING TYPE 2 DIABETES MELLITUS
     Dosage: UNK UNK, WITH MEALS
     Route: 065
     Dates: start: 2010
  2. HUMALOG LISPRO [Interacting]
     Dosage: UNK UNK, WITH MEALS
     Route: 065
     Dates: start: 2010
  3. LANTUS [Concomitant]
  4. PLAVIX [Concomitant]

REACTIONS (11)
  - Dizziness [Unknown]
  - Drug interaction [Unknown]
  - Anaemia [Unknown]
  - Sarcoidosis [Unknown]
  - Injection site injury [Not Recovered/Not Resolved]
  - Injection site haemorrhage [Unknown]
  - Impaired healing [Not Recovered/Not Resolved]
  - Increased tendency to bruise [Not Recovered/Not Resolved]
  - Weight increased [Not Recovered/Not Resolved]
  - Pain [Not Recovered/Not Resolved]
  - Dysarthria [Not Recovered/Not Resolved]
